FAERS Safety Report 8302082-3 (Version None)
Quarter: 2012Q2

REPORT INFORMATION
  Report Type: 
  Country: None (occurrence: None)
  Receive Date: 20120420
  Receipt Date: 20120417
  Transmission Date: 20120825
  Serious: Yes (Life-Threatening)
  Sender: FDA-Public Use
  Company Number: FR-MERCK-1201USA02687

PATIENT
  Age: 50 Year
  Sex: Female

DRUGS (15)
  1. FOLINORAL [Concomitant]
     Route: 065
  2. BRICANYL [Concomitant]
     Route: 065
  3. VFEND [Suspect]
     Indication: IMMUNOSUPPRESSION
     Route: 065
     Dates: start: 20111024
  4. PREDNISONE TAB [Concomitant]
     Route: 065
  5. INVANZ [Suspect]
     Indication: INFECTION
     Route: 065
     Dates: start: 20111110, end: 20111114
  6. NEXIUM [Concomitant]
     Route: 065
  7. ACETAMINOPHEN [Concomitant]
     Route: 065
  8. EPREX [Suspect]
     Indication: ANAEMIA
     Route: 065
     Dates: start: 20111024
  9. CYCLOSPORINE [Suspect]
     Indication: IMMUNOSUPPRESSION
     Route: 042
     Dates: start: 20111024, end: 20111109
  10. MYCOPHENOLATE MOFETIL (CELLCEPT) [Suspect]
     Indication: IMMUNOSUPPRESSION
     Route: 065
     Dates: start: 20111024
  11. VALACYCLOVIR HYDROCHLORIDE [Concomitant]
     Route: 065
  12. PROGRAF [Suspect]
     Indication: IMMUNOSUPPRESSION
     Route: 065
     Dates: start: 20111107, end: 20111116
  13. UMULINE RAPIDE [Concomitant]
     Route: 065
  14. ATROVENT [Concomitant]
     Route: 065
  15. LASIX [Concomitant]
     Route: 065

REACTIONS (2)
  - CONVULSION [None]
  - POSTERIOR REVERSIBLE ENCEPHALOPATHY SYNDROME [None]
